FAERS Safety Report 9972537 (Version 1)
Quarter: 2014Q1

REPORT INFORMATION
  Report Type: Report from Study
  Country: US (occurrence: US)
  Receive Date: 20140306
  Receipt Date: 20140306
  Transmission Date: 20141002
  Serious: No
  Sender: FDA-Public Use
  Company Number: US-ABBVIE-13P-163-1155391-00

PATIENT
  Age: 47 Year
  Sex: Female
  Weight: 61.29 kg

DRUGS (4)
  1. HUMIRA [Suspect]
     Indication: RHEUMATOID ARTHRITIS
     Route: 058
     Dates: start: 201209
  2. CITALOPRAM [Concomitant]
     Indication: DEPRESSION
     Route: 048
  3. SOMA [Concomitant]
     Indication: PRODUCT USED FOR UNKNOWN INDICATION
  4. ALBUTEROL HFA [Concomitant]
     Indication: CHRONIC OBSTRUCTIVE PULMONARY DISEASE
     Route: 055

REACTIONS (1)
  - Injection site pain [Not Recovered/Not Resolved]
